FAERS Safety Report 5105435-X (Version None)
Quarter: 2006Q3

REPORT INFORMATION
  Report Type: 
  Country: None (occurrence: None)
  Receive Date: 20060915
  Receipt Date: 20051121
  Transmission Date: 20061208
  Serious: Yes (Hospitalization)
  Sender: FDA-Public Use
  Company Number: 2005AP06111

PATIENT
  Age: 22221 Day
  Sex: Female
  Weight: 43.7 kg

DRUGS (30)
  1. IRESSA [Suspect]
     Indication: LUNG ADENOCARCINOMA
     Route: 048
     Dates: start: 20050811, end: 20060214
  2. ACUATIM [Concomitant]
     Indication: ACNE
     Dates: start: 20050818
  3. LOCOID [Concomitant]
     Indication: RASH
     Dates: start: 20050818
  4. AZUNOL [Concomitant]
     Indication: STOMATITIS
     Dates: start: 20050829
  5. ELASE [Concomitant]
     Indication: STOMATITIS
     Dates: start: 20050829
  6. XYLOCAINE [Concomitant]
     Indication: STOMATITIS
     Dates: start: 20050829
  7. SEISHOKU [Concomitant]
     Indication: STOMATITIS
     Dates: start: 20050829
  8. MUCOSTA [Concomitant]
     Indication: GASTRITIS
     Route: 048
     Dates: start: 20050910
  9. BERIZYM [Concomitant]
     Indication: GASTRITIS
     Route: 048
     Dates: start: 20050910
  10. KERATINAMIN [Concomitant]
     Indication: DERMATITIS
     Dates: start: 20050928
  11. ADOFEED [Concomitant]
     Indication: ARTHRITIS
     Dates: start: 20051019
  12. MEIACT [Concomitant]
     Indication: MYRINGITIS
     Route: 048
     Dates: start: 20051114, end: 20051201
  13. PL [Concomitant]
     Indication: UPPER RESPIRATORY TRACT INFECTION
     Route: 048
     Dates: start: 20051114, end: 20051123
  14. ALLEGRA [Concomitant]
     Indication: UPPER RESPIRATORY TRACT INFECTION
     Route: 048
     Dates: start: 20051114, end: 20051123
  15. DEXALTIN [Concomitant]
     Indication: STOMATITIS
  16. LOXONIN [Concomitant]
     Indication: PAIN
     Route: 048
  17. ALFAROL [Concomitant]
     Indication: OSTEOPOROSIS
     Route: 048
  18. JUVELA N [Concomitant]
     Indication: HYPERLIPIDAEMIA
     Route: 048
  19. PREMARIN [Concomitant]
     Indication: MENOPAUSAL SYMPTOMS
     Route: 048
  20. ISODINE [Concomitant]
     Indication: INFECTION PROPHYLAXIS
  21. LENDORMIN [Concomitant]
     Indication: INSOMNIA
     Route: 048
  22. LAC B [Concomitant]
     Indication: DIARRHOEA
     Route: 048
     Dates: start: 20050831
  23. ZINC OXIDE OIL [Concomitant]
     Indication: PARONYCHIA
     Dates: start: 20060125
  24. RINDERON-VG [Concomitant]
     Indication: RASH
     Dates: start: 20060127
  25. GOSHA-JINKI-GAN [Concomitant]
     Indication: HYPOAESTHESIA
     Route: 048
     Dates: end: 20051004
  26. CYANOCOBALAMIN [Concomitant]
     Indication: HYPOAESTHESIA
     Route: 048
     Dates: end: 20051004
  27. HANGE-SHASHIN-TO [Concomitant]
     Indication: DIARRHOEA
     Route: 048
     Dates: start: 20050831
  28. OSTELUC [Concomitant]
     Indication: MUSCULOSKELETAL PAIN
     Route: 048
     Dates: start: 20051019, end: 20051110
  29. NEUROTROPIN [Concomitant]
     Indication: MUSCULOSKELETAL PAIN
     Route: 048
     Dates: start: 20051019, end: 20060212
  30. KETOPROFEN [Concomitant]
     Indication: MUSCULOSKELETAL PAIN
     Dates: start: 20051102, end: 20051102

REACTIONS (14)
  - ACNE [None]
  - DEHYDRATION [None]
  - DRUG INEFFECTIVE [None]
  - DRY SKIN [None]
  - DYSPEPSIA [None]
  - ENTEROCOLITIS INFECTIOUS [None]
  - FOOD POISONING [None]
  - GASTROINTESTINAL MOTILITY DISORDER [None]
  - MYRINGITIS [None]
  - OTITIS MEDIA [None]
  - RASH [None]
  - STOMATITIS [None]
  - UPPER RESPIRATORY TRACT INFECTION [None]
  - VOMITING [None]
